FAERS Safety Report 19962997 (Version 1)
Quarter: 2021Q4

REPORT INFORMATION
  Report Type: Spontaneous
  Country: IT (occurrence: IT)
  Receive Date: 20211018
  Receipt Date: 20211018
  Transmission Date: 20220303
  Serious: Yes (Hospitalization, Other)
  Sender: FDA-Public Use
  Company Number: IT-ABBVIE-21K-083-4119531-00

PATIENT
  Age: 44 Year
  Sex: Male

DRUGS (3)
  1. VALPROATE SODIUM [Suspect]
     Active Substance: VALPROATE SODIUM
     Indication: Suicide attempt
     Route: 048
     Dates: start: 20190309, end: 20190309
  2. QUETIAPINE FUMARATE [Suspect]
     Active Substance: QUETIAPINE FUMARATE
     Indication: Suicide attempt
     Route: 048
     Dates: start: 20190309, end: 20190309
  3. SERTRALINE HYDROCHLORIDE [Suspect]
     Active Substance: SERTRALINE HYDROCHLORIDE
     Indication: Suicide attempt
     Route: 048
     Dates: start: 20190309, end: 20190309

REACTIONS (5)
  - Toxicity to various agents [Recovering/Resolving]
  - Sedation [Recovering/Resolving]
  - Intentional product misuse [Unknown]
  - Drug abuse [Unknown]
  - Somnolence [Recovering/Resolving]

NARRATIVE: CASE EVENT DATE: 20190309
